FAERS Safety Report 20835296 (Version 1)
Quarter: 2022Q2

REPORT INFORMATION
  Report Type: Spontaneous
  Country: MZ (occurrence: MZ)
  Receive Date: 20220516
  Receipt Date: 20220516
  Transmission Date: 20220721
  Serious: Yes (Other)
  Sender: FDA-Public Use
  Company Number: MZ-Population Council-2021TPC000204

PATIENT
  Age: 34 Year
  Sex: Female
  Weight: 64 kg

DRUGS (2)
  1. LEVONORGESTREL [Suspect]
     Active Substance: LEVONORGESTREL
     Indication: Product used for unknown indication
     Route: 059
     Dates: start: 20190306, end: 20211021
  2. DOLUTEGRAVIR SODIUM;LAMIVUDINE;TENOFOVIR DISOPROXIL FUMARATE [Concomitant]
     Indication: Product used for unknown indication
     Dosage: UNKNOWN

REACTIONS (5)
  - Pregnancy with implant contraceptive [Unknown]
  - Waist circumference increased [Unknown]
  - Drug ineffective [Unknown]
  - Amenorrhoea [Unknown]
  - Menstruation irregular [Unknown]

NARRATIVE: CASE EVENT DATE: 20190306
